FAERS Safety Report 7556584-8 (Version None)
Quarter: 2011Q2

REPORT INFORMATION
  Report Type: 
  Country: None (occurrence: None)
  Receive Date: 20110616
  Receipt Date: 20110616
  Transmission Date: 20111010
  Serious: Yes (Hospitalization)
  Sender: FDA-Public Use
  Company Number: None

PATIENT
  Age: 76 Year
  Sex: Male
  Weight: 56.6996 kg

DRUGS (1)
  1. PRIVIGEN [Suspect]
     Indication: MYASTHENIA GRAVIS CRISIS
     Dosage: 45 GRAMS DAILY 5 DAYS X 2 COURSES

REACTIONS (1)
  - HAEMOLYSIS [None]
